FAERS Safety Report 6883413-8 (Version None)
Quarter: 2010Q3

REPORT INFORMATION
  Report Type: 
  Country: None (occurrence: None)
  Receive Date: 20100727
  Receipt Date: 20100720
  Transmission Date: 20110219
  Serious: Yes (Other)
  Sender: FDA-Public Use
  Company Number: 2010MA001011

PATIENT
  Age: 28 Year
  Sex: Female

DRUGS (3)
  1. DIAZEPAM [Suspect]
     Indication: ANXIETY
     Dosage: 2 MG;PO
     Route: 048
  2. VENLAFAXINE HCL [Concomitant]
  3. ESTRADIOL [Concomitant]

REACTIONS (1)
  - DEVICE INEFFECTIVE [None]
